FAERS Safety Report 17400156 (Version 1)
Quarter: 2020Q1

REPORT INFORMATION
  Report Type: Spontaneous
  Country: NL (occurrence: NL)
  Receive Date: 20200211
  Receipt Date: 20200211
  Transmission Date: 20200409
  Serious: Yes (Other)
  Sender: FDA-Public Use
  Company Number: NL-GLAXOSMITHKLINE-NL2020021785

PATIENT
  Age: 68 Year
  Sex: Male
  Weight: 86 kg

DRUGS (1)
  1. INCRUSE ELLIPTA [Suspect]
     Active Substance: UMECLIDINIUM BROMIDE
     Indication: CHRONIC OBSTRUCTIVE PULMONARY DISEASE
     Dosage: 1 DF, QD, INHALATION POWDER, 55 ?G / DOSE (MICROGRAMS PER DOSE), ONCE DAILY, 1
     Route: 065
     Dates: start: 20191206, end: 20191218

REACTIONS (2)
  - Swollen tongue [Recovered/Resolved]
  - Tracheal oedema [Recovered/Resolved]

NARRATIVE: CASE EVENT DATE: 20191212
